FAERS Safety Report 25276173 (Version 2)
Quarter: 2025Q2

REPORT INFORMATION
  Report Type: Spontaneous
  Country: US (occurrence: US)
  Receive Date: 20250507
  Receipt Date: 20250515
  Transmission Date: 20250717
  Serious: No
  Sender: ELI LILLY AND COMPANY
  Company Number: US-ELI_LILLY_AND_COMPANY-US202505002446

PATIENT
  Age: 62 Year

DRUGS (8)
  1. MOUNJARO [Suspect]
     Active Substance: TIRZEPATIDE
     Indication: Product used for unknown indication
     Route: 065
  2. MOUNJARO [Suspect]
     Active Substance: TIRZEPATIDE
     Indication: Product used for unknown indication
     Route: 065
  3. MOUNJARO [Suspect]
     Active Substance: TIRZEPATIDE
     Indication: Product used for unknown indication
     Route: 065
  4. MOUNJARO [Suspect]
     Active Substance: TIRZEPATIDE
     Indication: Product used for unknown indication
     Route: 065
  5. MOUNJARO [Suspect]
     Active Substance: TIRZEPATIDE
     Route: 065
     Dates: start: 20250510
  6. MOUNJARO [Suspect]
     Active Substance: TIRZEPATIDE
     Route: 065
     Dates: start: 20250510
  7. MOUNJARO [Suspect]
     Active Substance: TIRZEPATIDE
     Route: 065
     Dates: start: 20250510
  8. MOUNJARO [Suspect]
     Active Substance: TIRZEPATIDE
     Route: 065
     Dates: start: 20250510

REACTIONS (6)
  - Incorrect dose administered [Unknown]
  - Injection site pain [Unknown]
  - Injection site haemorrhage [Unknown]
  - Injection site pruritus [Not Recovered/Not Resolved]
  - Injection site swelling [Not Recovered/Not Resolved]
  - Injection site inflammation [Not Recovered/Not Resolved]

NARRATIVE: CASE EVENT DATE: 20250502
